FAERS Safety Report 4536309-0 (Version None)
Quarter: 2004Q4

REPORT INFORMATION
  Report Type: 
  Country: None (occurrence: None)
  Receive Date: 20041220
  Receipt Date: 20041207
  Transmission Date: 20050328
  Serious: Yes (Other)
  Sender: FDA-Public Use
  Company Number: 2004111020

PATIENT
  Age: 89 Year

DRUGS (4)
  1. LIPITOR [Suspect]
     Indication: ILL-DEFINED DISORDER
  2. ACCUPRIL [Suspect]
     Indication: ILL-DEFINED DISORDER
  3. LOPID [Suspect]
     Indication: ILL-DEFINED DISORDER
  4. WARFARIN SODIUM [Concomitant]

REACTIONS (3)
  - IMPLANT SITE INFECTION [None]
  - OSTEOMYELITIS [None]
  - STAPHYLOCOCCAL INFECTION [None]
